FAERS Safety Report 20719550 (Version 3)
Quarter: 2023Q2

REPORT INFORMATION
  Report Type: Report from Study
  Country: DE (occurrence: DE)
  Receive Date: 20220418
  Receipt Date: 20230419
  Transmission Date: 20230722
  Serious: Yes (Hospitalization, Other)
  Sender: FDA-Public Use
  Company Number: DE-002147023-NVSC2022DE053925

PATIENT
  Sex: Female
  Weight: 86 kg

DRUGS (21)
  1. METHOTREXATE [Suspect]
     Active Substance: METHOTREXATE
     Indication: Psoriatic arthropathy
     Dosage: 20 MILLIGRAM, QW
     Route: 065
     Dates: start: 201904
  2. COSENTYX [Suspect]
     Active Substance: SECUKINUMAB
     Indication: Psoriatic arthropathy
     Dosage: 150 MILLIGRAM, QW
     Route: 058
     Dates: start: 20210414, end: 20210505
  3. COSENTYX [Suspect]
     Active Substance: SECUKINUMAB
     Dosage: 150 MILLIGRAM, MONTHLY
     Route: 058
     Dates: start: 20210512
  4. COSENTYX [Suspect]
     Active Substance: SECUKINUMAB
     Dosage: 150 MG, TOTAL (150 MG, ONCE/SINGLE )
     Route: 065
     Dates: start: 20210804, end: 20210804
  5. COSENTYX [Suspect]
     Active Substance: SECUKINUMAB
     Dosage: 150 MG, TOTAL (150 MG, ONCE/SINGLE)
     Route: 065
     Dates: start: 20210901, end: 20210901
  6. COSENTYX [Suspect]
     Active Substance: SECUKINUMAB
     Dosage: 150 MG, TOTAL (150 MG, ONCE/SINGLE)
     Route: 065
     Dates: start: 20210929, end: 20210929
  7. COSENTYX [Suspect]
     Active Substance: SECUKINUMAB
     Dosage: 150 MG, TOTAL (150 MG, ONCE/SINGLE)
     Route: 065
     Dates: start: 20211027, end: 20211027
  8. COSENTYX [Suspect]
     Active Substance: SECUKINUMAB
     Dosage: 150 MG, MONTHLY (150 MG, QMO)
     Route: 058
     Dates: end: 20211123
  9. COSENTYX [Suspect]
     Active Substance: SECUKINUMAB
     Dosage: 150 MG, MONTHLY (150 MG, QMO)
     Route: 058
     Dates: start: 20211124, end: 20211124
  10. CHOLECALCIFEROL [Concomitant]
     Active Substance: CHOLECALCIFEROL
     Indication: Osteoporosis prophylaxis
     Dosage: 1000 IU, QD (ONCE DAILY IN THE MORNING)
     Route: 048
     Dates: start: 201812
  11. IBUPROFEN [Concomitant]
     Active Substance: IBUPROFEN
     Indication: Psoriatic arthropathy
     Dosage: 600 MILLIGRAM, Q2D
     Route: 048
     Dates: start: 202109, end: 202111
  12. ETORICOXIB [Concomitant]
     Active Substance: ETORICOXIB
     Indication: Psoriatic arthropathy
     Dosage: 60 MILLIGRAM, PRN
     Route: 048
     Dates: start: 202001, end: 202112
  13. ETORICOXIB [Concomitant]
     Active Substance: ETORICOXIB
     Dosage: 90 MG, QD (AS NEEDED)
     Route: 048
     Dates: start: 20211115, end: 202112
  14. Novalgin [Concomitant]
     Indication: Product used for unknown indication
     Dosage: 2 DF, TID (IN THE MORNING, AT NOON, EVENING)
     Route: 065
  15. Novalgin [Concomitant]
     Dosage: 6 DF, QD (2 DF, TID (MORNING,NOON,EVENING)
     Route: 065
  16. PROGESTERONE [Concomitant]
     Active Substance: PROGESTERONE
     Indication: Product used for unknown indication
     Dosage: UNK
     Route: 065
  17. INFLUVAC VACCINE [Concomitant]
     Indication: Influenza immunisation
     Dosage: 0.5 ML, QD
     Route: 030
     Dates: start: 20211013, end: 20211013
  18. ALIZAPRIDE HYDROCHLORIDE [Concomitant]
     Active Substance: ALIZAPRIDE HYDROCHLORIDE
     Indication: Nausea
     Dosage: 50 MILLIGRAM, PRN
     Route: 065
     Dates: start: 20220210
  19. RAMIPRIL [Concomitant]
     Active Substance: RAMIPRIL
     Indication: Hypertension
     Dosage: 2.5 MG, QD (ONCE DAILY IN THE MORNING)
     Route: 048
     Dates: start: 20210809
  20. UNSPECIFIED INGREDIENT [Concomitant]
     Active Substance: UNSPECIFIED INGREDIENT
     Indication: Thrombosis prophylaxis
     Dosage: 4500 IU (ONCE DAILY IN THE EVENING)
     Route: 065
  21. ESTRADIOL [Concomitant]
     Active Substance: ESTRADIOL
     Indication: Product used for unknown indication
     Dosage: UNK
     Route: 065

REACTIONS (16)
  - Gastrointestinal wall thickening [Unknown]
  - Tissue infiltration [Unknown]
  - Mesenteritis [Unknown]
  - Lymphangiosis carcinomatosa [Unknown]
  - Tumour invasion [Unknown]
  - Ileal stenosis [Unknown]
  - Retroperitoneal lymphadenopathy [Unknown]
  - Adenocarcinoma of colon [Recovering/Resolving]
  - Metastases to lymph nodes [Unknown]
  - Lymphadenopathy [Unknown]
  - Diverticulum intestinal [Unknown]
  - Ovarian cyst [Unknown]
  - Polyp [Unknown]
  - Hiatus hernia [Unknown]
  - Product use in unapproved indication [Unknown]
  - Off label use [Unknown]

NARRATIVE: CASE EVENT DATE: 20211206
